FAERS Safety Report 5169720-8 (Version None)
Quarter: 2006Q4

REPORT INFORMATION
  Report Type: 
  Country: None (occurrence: None)
  Receive Date: 20061212
  Receipt Date: 20061130
  Transmission Date: 20070319
  Serious: Yes (Disabling, Other)
  Sender: FDA-Public Use
  Company Number: PHBS2006IT18798

PATIENT
  Age: 69 Year
  Sex: Female

DRUGS (8)
  1. FERRO-GRAD FOLIC [Concomitant]
     Route: 048
  2. DISEON [Concomitant]
     Route: 048
  3. ZOMETA [Suspect]
     Indication: BREAST CANCER
     Dosage: 4 MG, EVERY MONTH
     Route: 042
     Dates: start: 20050201, end: 20060701
  4. ZOMETA [Suspect]
     Dosage: 4 MG, QUARTERLY
     Dates: start: 20060801, end: 20061001
  5. NIMESULIDE [Concomitant]
     Route: 065
  6. PLAQUENIL [Concomitant]
     Dosage: 200 MG/D
     Route: 048
  7. METHOTREXATE [Concomitant]
     Dosage: 7.5 MG/D
     Route: 048
  8. MEDROL [Concomitant]
     Route: 048

REACTIONS (5)
  - BONE DISORDER [None]
  - FISTULA [None]
  - OSTEONECROSIS [None]
  - SURGERY [None]
  - TOOTH EXTRACTION [None]
